FAERS Safety Report 24200662 (Version 1)
Quarter: 2024Q3

REPORT INFORMATION
  Report Type: Spontaneous
  Country: US (occurrence: US)
  Receive Date: 20240812
  Receipt Date: 20240812
  Transmission Date: 20241017
  Serious: No
  Sender: ANI
  Company Number: US-ANIPHARMA-2024-US-037392

PATIENT
  Age: 76 Year
  Sex: Female

DRUGS (34)
  1. CORTICOTROPIN [Suspect]
     Active Substance: CORTICOTROPIN
     Indication: Scleritis
     Dosage: 80 UNITS  SUBCUTANEOUS EVERY 3 DAYS
     Route: 058
  2. VITAMIN D3 [Concomitant]
     Active Substance: CHOLECALCIFEROL
  3. KRILL OIL [Concomitant]
     Active Substance: DIETARY SUPPLEMENT\KRILL OIL
  4. FIBER THERAPY (CALCIUM POLYCARBOPHIL) [Concomitant]
     Active Substance: CALCIUM POLYCARBOPHIL
  5. COLLAGEN ULTRA [Concomitant]
  6. ZYRTEC [Concomitant]
     Active Substance: CETIRIZINE HYDROCHLORIDE
  7. DULERA [Concomitant]
     Active Substance: FORMOTEROL FUMARATE DIHYDRATE\MOMETASONE FUROATE
  8. ENALAPRIL MALEATE [Concomitant]
     Active Substance: ENALAPRIL MALEATE
  9. FLONASE [Concomitant]
     Active Substance: FLUTICASONE PROPIONATE
  10. HYDROCHLOROTHIAZIDE [Concomitant]
     Active Substance: HYDROCHLOROTHIAZIDE
  11. STELARA [Concomitant]
     Active Substance: USTEKINUMAB
  12. CARAFATE [Concomitant]
     Active Substance: SUCRALFATE
  13. PREDNISOLONE ACETATE [Concomitant]
     Active Substance: PREDNISOLONE ACETATE
  14. LATANOPROST [Concomitant]
     Active Substance: LATANOPROST
  15. ACETAZOLAMIDE [Concomitant]
     Active Substance: ACETAZOLAMIDE
  16. GABAPENTIN [Concomitant]
     Active Substance: GABAPENTIN
  17. BRIMONIDINE TARTRATE [Concomitant]
     Active Substance: BRIMONIDINE TARTRATE
  18. MUCINEX DM MAXIMUM [Concomitant]
  19. ALBUTEROL SULFATE [Concomitant]
     Active Substance: ALBUTEROL SULFATE
  20. TOLTERODINE TARTRATE [Concomitant]
     Active Substance: TOLTERODINE TARTRATE
  21. LEVOTHYROXINE SODIUM [Concomitant]
     Active Substance: LEVOTHYROXINE SODIUM
  22. SINGULAIR [Concomitant]
     Active Substance: MONTELUKAST SODIUM
  23. LANTUS SOLOSTAR [Concomitant]
     Active Substance: INSULIN GLARGINE
  24. OMEPRAZOLE [Concomitant]
     Active Substance: OMEPRAZOLE
  25. KETOROLAC TROMETHAMINE [Concomitant]
     Active Substance: KETOROLAC TROMETHAMINE
  26. TIMOLOL MALEATE [Concomitant]
     Active Substance: TIMOLOL MALEATE
  27. MAGNESIUM [Concomitant]
     Active Substance: MAGNESIUM
  28. PREDNISONE [Suspect]
     Active Substance: PREDNISONE
  29. IRON [Concomitant]
     Active Substance: IRON
  30. VITAMINS [Concomitant]
     Active Substance: VITAMINS
  31. CALCIUM\VITAMIN D [Concomitant]
     Active Substance: CALCIUM\VITAMIN D
  32. VITAMIN B12 [Concomitant]
     Active Substance: CYANOCOBALAMIN
  33. GLUCOSAMINE + CHONDROITIN [Concomitant]
  34. VITAMIN C [Concomitant]
     Active Substance: ASCORBIC ACID

REACTIONS (1)
  - Eye pain [Recovered/Resolved]

NARRATIVE: CASE EVENT DATE: 20240704
